FAERS Safety Report 19675704 (Version 1)
Quarter: 2021Q3

REPORT INFORMATION
  Report Type: Report from Study
  Country: US (occurrence: US)
  Receive Date: 20210809
  Receipt Date: 20210809
  Transmission Date: 20211014
  Serious: Yes (Other)
  Sender: FDA-Public Use
  Company Number: US-ROCHE-2885593

PATIENT
  Sex: Female

DRUGS (1)
  1. ATEZOLIZUMAB. [Suspect]
     Active Substance: ATEZOLIZUMAB
     Indication: TRIPLE NEGATIVE BREAST CANCER
     Dosage: OVER 30?60 MINUTES ON DAY 1. CYCLES REPEAT EVERY 21 DAYS IN THE ABSENCE OF DISEASE PROGRESSION OR UN
     Route: 041

REACTIONS (2)
  - Bone pain [Unknown]
  - Neutrophil count decreased [Unknown]
